FAERS Safety Report 25735898 (Version 1)
Quarter: 2025Q3

REPORT INFORMATION
  Report Type: Spontaneous
  Country: EU (occurrence: EU)
  Receive Date: 20250828
  Receipt Date: 20250828
  Transmission Date: 20251021
  Serious: Yes (Hospitalization, Disabling)
  Sender: TEVA
  Company Number: None

PATIENT
  Age: 33 Year
  Sex: Male

DRUGS (2)
  1. LAMOTRIGINE [Suspect]
     Active Substance: LAMOTRIGINE
     Indication: Epilepsy
     Route: 048
     Dates: start: 202501
  2. KESIMPTA [Suspect]
     Active Substance: OFATUMUMAB
     Indication: Multiple sclerosis
     Dosage: MONTHLY
     Route: 058
     Dates: start: 20241210, end: 20250511

REACTIONS (4)
  - Mouth ulceration [Recovered/Resolved]
  - Rhinovirus infection [Recovered/Resolved]
  - Neutropenia [Recovered/Resolved]
  - Pharyngeal ulceration [Recovered/Resolved]

NARRATIVE: CASE EVENT DATE: 20250530
